FAERS Safety Report 9028711 (Version 2)
Quarter: 2013Q2

REPORT INFORMATION
  Report Type: Spontaneous
  Country: GB (occurrence: GB)
  Receive Date: 20130124
  Receipt Date: 20130409
  Transmission Date: 20140414
  Serious: Yes (Hospitalization, Other)
  Sender: FDA-Public Use
  Company Number: GB-INCYTE CORPORATION-2013IN000123

PATIENT
  Age: 73 Year
  Sex: Female

DRUGS (3)
  1. JAKAVI [Suspect]
     Indication: MYELOFIBROSIS
     Dosage: 20 MG, BID
     Route: 048
     Dates: start: 20120518, end: 20120705
  2. PARACETAMOL [Concomitant]
  3. MST [Concomitant]
     Dosage: UNK

REACTIONS (3)
  - Acute myeloid leukaemia [Not Recovered/Not Resolved]
  - Disease progression [Not Recovered/Not Resolved]
  - Neutropenia [Not Recovered/Not Resolved]
